FAERS Safety Report 15622484 (Version 1)
Quarter: 2018Q4

REPORT INFORMATION
  Report Type: Spontaneous
  Country: BR (occurrence: BR)
  Receive Date: 20181115
  Receipt Date: 20181115
  Transmission Date: 20190205
  Serious: Yes (Other)
  Sender: FDA-Public Use
  Company Number: BR-SAKK-2018SA310008AA

PATIENT
  Sex: Female
  Weight: 68 kg

DRUGS (7)
  1. PRESSAT [Concomitant]
     Active Substance: AMLODIPINE BESYLATE
     Dosage: 1 DF,1 TABLET IN THE MORNING
     Route: 048
     Dates: start: 2017
  2. SINTOCALMY [Concomitant]
     Dosage: 1 DF,1 TABLET BEFORE SLEEPING
     Route: 048
     Dates: start: 201805
  3. APIDRA [Suspect]
     Active Substance: INSULIN GLULISINE
     Indication: DIABETES MELLITUS
     Dosage: 6 IU, TID
     Route: 058
     Dates: start: 2017
  4. LANTUS [Suspect]
     Active Substance: INSULIN GLARGINE
     Indication: DIABETES MELLITUS
     Dosage: 24 IU, QD
     Route: 058
     Dates: start: 2017
  5. ENALAPRIL [Concomitant]
     Active Substance: ENALAPRIL
     Dosage: 2 DF, QD
     Route: 048
     Dates: start: 1998
  6. FLUOXETINE [FLUOXETINE HYDROCHLORIDE] [Concomitant]
     Indication: DEPRESSION
     Dosage: 1 DF, QD
     Route: 048
     Dates: start: 1988
  7. METFORMIN [METFORMIN HYDROCHLORIDE] [Concomitant]
     Active Substance: METFORMIN HYDROCHLORIDE
     Indication: DIABETES MELLITUS
     Dosage: 1 TABLET IN THE MORNING AND AT NIGHT
     Route: 048
     Dates: start: 1988

REACTIONS (4)
  - Nervousness [Unknown]
  - Product use issue [Unknown]
  - Blood glucose increased [Unknown]
  - Gastrointestinal carcinoma [Unknown]

NARRATIVE: CASE EVENT DATE: 2017
